FAERS Safety Report 4388202-4 (Version None)
Quarter: 2004Q2

REPORT INFORMATION
  Report Type: 
  Country: None (occurrence: None)
  Receive Date: 20040625
  Receipt Date: 20040612
  Transmission Date: 20050107
  Serious: Yes (Other)
  Sender: FDA-Public Use
  Company Number: 2004012246

PATIENT
  Age: 59 Year
  Sex: Female
  Weight: 120 kg

DRUGS (3)
  1. ZOLOFT [Suspect]
     Indication: DEPRESSION
     Dosage: 25 MG (1 IN 2 D)
     Dates: start: 20020101
  2. CONJUGATED ESTROGEN [Concomitant]
  3. THYROID TAB [Concomitant]

REACTIONS (7)
  - CATARACT [None]
  - CONDITION AGGRAVATED [None]
  - DISEASE RECURRENCE [None]
  - EYE OPERATION COMPLICATION [None]
  - MACULAR HOLE [None]
  - VISUAL ACUITY REDUCED [None]
  - VISUAL DISTURBANCE [None]
